FAERS Safety Report 20519382 (Version 3)
Quarter: 2022Q1

REPORT INFORMATION
  Report Type: Spontaneous
  Country: JP (occurrence: JP)
  Receive Date: 20220225
  Receipt Date: 20220323
  Transmission Date: 20220423
  Serious: No
  Sender: FDA-Public Use
  Company Number: JP-GSKNCCC-Case-01427636_AE-55086

PATIENT
  Age: 80 Year
  Sex: Female

DRUGS (2)
  1. SOTROVIMAB [Suspect]
     Active Substance: SOTROVIMAB
     Indication: COVID-19
     Dosage: 500 MG/100 ML/30 MIN
     Dates: start: 20220217, end: 20220217
  2. BISONO TAPE [Concomitant]
     Indication: Hypertension
     Dosage: 1 SHEET, QD
     Route: 003
     Dates: start: 202107

REACTIONS (4)
  - Pallor [Recovering/Resolving]
  - Cyanosis [Recovering/Resolving]
  - Sputum retention [Recovering/Resolving]
  - Productive cough [Recovering/Resolving]

NARRATIVE: CASE EVENT DATE: 20220217
